FAERS Safety Report 7811650-4 (Version None)
Quarter: 2011Q4

REPORT INFORMATION
  Report Type: 
  Country: None (occurrence: None)
  Receive Date: 20111013
  Receipt Date: 20111004
  Transmission Date: 20120403
  Serious: Yes (Other)
  Sender: FDA-Public Use
  Company Number: US-CELGENEUS-163-21880-11091019

PATIENT
  Sex: Male

DRUGS (19)
  1. AVODART [Concomitant]
     Route: 065
  2. SYNTHROID [Concomitant]
     Route: 065
  3. VITAMIN D [Concomitant]
     Route: 065
  4. BROVANA [Concomitant]
     Route: 065
  5. LOPRESSOR [Concomitant]
     Route: 065
  6. HYDROCHLOROTHIAZIDE [Concomitant]
     Route: 065
  7. ASPIRIN [Concomitant]
     Route: 065
  8. MAGNESIUM [Concomitant]
     Route: 065
  9. BUDESONIDE [Concomitant]
     Route: 065
  10. REVLIMID [Suspect]
     Indication: MYELODYSPLASTIC SYNDROME
     Dosage: 5 MILLIGRAM
     Route: 048
     Dates: start: 20110801
  11. WELLBUTRIN [Concomitant]
     Route: 065
  12. ASACOL [Concomitant]
     Route: 065
  13. IMDUR [Concomitant]
     Route: 065
  14. REVLIMID [Suspect]
     Dosage: 5 MILLIGRAM
     Route: 048
     Dates: start: 20110901
  15. PROCRIT [Concomitant]
     Route: 065
  16. CARDURA [Concomitant]
     Route: 065
  17. FOLIC ACID [Concomitant]
     Route: 065
  18. COMBIVENT [Concomitant]
     Route: 065
  19. MULTI-VITAMIN [Concomitant]
     Route: 065

REACTIONS (1)
  - COLITIS ULCERATIVE [None]
